FAERS Safety Report 16638686 (Version 2)
Quarter: 2019Q3

REPORT INFORMATION
  Report Type: Report from Study
  Country: US (occurrence: US)
  Receive Date: 20190726
  Receipt Date: 20190928
  Transmission Date: 20191004
  Serious: Yes (Other)
  Sender: FDA-Public Use
  Company Number: PHEH2019US030488

PATIENT
  Age: 60 Year
  Sex: Female
  Weight: 95.24 kg

DRUGS (1)
  1. COSENTYX [Suspect]
     Active Substance: SECUKINUMAB
     Indication: PSORIATIC ARTHROPATHY
     Dosage: 300 MG, QW
     Route: 058
     Dates: start: 20190710

REACTIONS (6)
  - Loss of consciousness [Unknown]
  - Vision blurred [Unknown]
  - Eye pain [Unknown]
  - Visual impairment [Unknown]
  - Photopsia [Unknown]
  - Headache [Unknown]

NARRATIVE: CASE EVENT DATE: 20190710
